FAERS Safety Report 25336324 (Version 2)
Quarter: 2025Q2

REPORT INFORMATION
  Report Type: Spontaneous
  Country: CO (occurrence: CO)
  Receive Date: 20250520
  Receipt Date: 20250530
  Transmission Date: 20250717
  Serious: No
  Sender: PFIZER
  Company Number: CO-PFIZER INC-PV202500058601

PATIENT
  Sex: Male

DRUGS (1)
  1. GENOTROPIN [Suspect]
     Active Substance: SOMATROPIN
     Dosage: 1.0 MG, DAILY

REACTIONS (2)
  - Injection site pain [Unknown]
  - Patient-device incompatibility [Unknown]
